FAERS Safety Report 10611273 (Version 2)
Quarter: 2015Q1

REPORT INFORMATION
  Report Type: Spontaneous
  Country: US (occurrence: US)
  Receive Date: 20141126
  Receipt Date: 20150225
  Transmission Date: 20150720
  Serious: No
  Sender: FDA-Public Use
  Company Number: US-MALLINCKRODT-T201403966

PATIENT
  Sex: Male

DRUGS (2)
  1. TECHNESCAN HDP [Suspect]
     Active Substance: OXIDRONATE DISODIUM\TECHNETIUM TC-99M OXIDRONATE
     Indication: PRODUCT USED FOR UNKNOWN INDICATION
     Route: 042
  2. ULTRA-TECHNEKOW DTE [Suspect]
     Active Substance: MOLYBDENUM MO-99\TECHNETIUM TC-99M
     Indication: PRODUCT USED FOR UNKNOWN INDICATION
     Route: 042

REACTIONS (1)
  - Bone pain [Unknown]
